FAERS Safety Report 5900704-5 (Version None)
Quarter: 2008Q3

REPORT INFORMATION
  Report Type: 
  Country: None (occurrence: None)
  Receive Date: 20080926
  Receipt Date: 20080917
  Transmission Date: 20090109
  Serious: Yes (Other)
  Sender: FDA-Public Use
  Company Number: JP-PFIZER INC-2008080135

PATIENT

DRUGS (1)
  1. HYSRON-H200 [Suspect]
     Indication: BREAST CANCER
     Dosage: DAILY DOSE:800MG
     Route: 048

REACTIONS (2)
  - MUSCLE SPASMS [None]
  - TREMOR [None]
